FAERS Safety Report 6106874-0 (Version None)
Quarter: 2009Q1

REPORT INFORMATION
  Report Type: 
  Country: None (occurrence: None)
  Receive Date: 20090302
  Receipt Date: 20090219
  Transmission Date: 20090719
  Serious: Yes (Other)
  Sender: FDA-Public Use
  Company Number: 230046K09AUS

PATIENT
  Sex: Male

DRUGS (3)
  1. REBIF [Suspect]
     Indication: MULTIPLE SCLEROSIS
     Dates: start: 20090204
  2. ACETAMINOPHEN [Concomitant]
  3. NEUROFEN (IBUPROFEN) [Concomitant]

REACTIONS (1)
  - MALIGNANT MELANOMA STAGE I [None]
